FAERS Safety Report 4691423-4 (Version None)
Quarter: 2005Q2

REPORT INFORMATION
  Report Type: 
  Country: None (occurrence: None)
  Receive Date: 20050615
  Receipt Date: 20050527
  Transmission Date: 20051028
  Serious: Yes (Other)
  Sender: FDA-Public Use
  Company Number: 05-000394

PATIENT
  Age: 53 Year
  Sex: Female
  Weight: 78.5 kg

DRUGS (1)
  1. FEMRING [Suspect]
     Indication: HORMONE REPLACEMENT THERAPY
     Dosage: 0.05 MG, QD, VAGINAL
     Route: 067
     Dates: start: 20050524, end: 20050525

REACTIONS (3)
  - BREAST MASS [None]
  - DYSPAREUNIA [None]
  - VULVOVAGINAL DISCOMFORT [None]
